FAERS Safety Report 21029655 (Version 1)
Quarter: 2022Q2

REPORT INFORMATION
  Report Type: Spontaneous
  Country: US (occurrence: US)
  Receive Date: 20220630
  Receipt Date: 20220630
  Transmission Date: 20220721
  Serious: No
  Sender: FDA-Public Use
  Company Number: US-009507513-2206USA001609

PATIENT
  Age: 45 Year
  Sex: Male

DRUGS (2)
  1. NOXAFIL [Interacting]
     Active Substance: POSACONAZOLE
     Dosage: UNK
     Route: 048
  2. VENCLEXTA [Interacting]
     Active Substance: VENETOCLAX
     Indication: Acute myeloid leukaemia
     Dosage: 100 MILLIGRAM, QD
     Route: 048
     Dates: start: 20220527

REACTIONS (1)
  - Drug interaction [Recovered/Resolved]

NARRATIVE: CASE EVENT DATE: 20220527
